FAERS Safety Report 8538712-0 (Version None)
Quarter: 2012Q3

REPORT INFORMATION
  Report Type: 
  Country: None (occurrence: None)
  Receive Date: 20120716
  Receipt Date: 20111201
  Transmission Date: 20120928
  Serious: Yes (Other)
  Sender: FDA-Public Use
  Company Number: C11-009

PATIENT
  Age: 71 Year
  Sex: Male
  Weight: 84 kg

DRUGS (4)
  1. RIFAMPICIN [Suspect]
     Indication: TUBERCULOSIS
     Dosage: 600 MG/QD
  2. BISOPROLOL FUMARATE [Suspect]
     Indication: HYPERTENSION
     Dosage: 3.75 MG;QD, 3.75 MG;AM, 1.875 MG;PM
  3. ETHAMBUTOL HYDROCHLORIDE [Concomitant]
  4. ISONIAZID [Concomitant]

REACTIONS (8)
  - DRUG EFFECT DECREASED [None]
  - BODY TEMPERATURE INCREASED [None]
  - BLADDER CANCER [None]
  - VENTRICULAR EXTRASYSTOLES [None]
  - HYPERTENSION [None]
  - ARRHYTHMIA [None]
  - TUBERCULOSIS BLADDER [None]
  - DRUG CLEARANCE INCREASED [None]
